FAERS Safety Report 6432321-5 (Version None)
Quarter: 2009Q4

REPORT INFORMATION
  Report Type: 
  Country: None (occurrence: None)
  Receive Date: 20091105
  Receipt Date: 20091021
  Transmission Date: 20100525
  Serious: Yes (Other)
  Sender: FDA-Public Use
  Company Number: AUR-APL-2009-01003

PATIENT
  Sex: Female

DRUGS (2)
  1. ALENDRONATE [Suspect]
     Dosage: 70MG, WEEKLY
  2. CONJUGATED ESTROGENS [Concomitant]

REACTIONS (4)
  - ARTHRALGIA [None]
  - FEMUR FRACTURE [None]
  - PAIN IN EXTREMITY [None]
  - STRESS FRACTURE [None]
